FAERS Safety Report 21950311 (Version 2)
Quarter: 2023Q1

REPORT INFORMATION
  Report Type: Spontaneous
  Country: US (occurrence: US)
  Receive Date: 20230203
  Receipt Date: 20230328
  Transmission Date: 20230418
  Serious: Yes (Other)
  Sender: FDA-Public Use
  Company Number: US-BAYER-2023A011156

PATIENT
  Age: 27 Year
  Sex: Female
  Weight: 82.1 kg

DRUGS (3)
  1. MIRENA [Suspect]
     Active Substance: LEVONORGESTREL
     Indication: Contraception
     Dosage: 20?G/DAY
     Route: 015
     Dates: start: 20160829, end: 20230125
  2. MISOPROSTOL [Concomitant]
     Active Substance: MISOPROSTOL
     Dosage: UNK
     Dates: start: 202202
  3. MISOPROSTOL [Concomitant]
     Active Substance: MISOPROSTOL
     Dosage: UNK
     Dates: start: 20230315

REACTIONS (4)
  - Pregnancy with contraceptive device [None]
  - Haemorrhage in pregnancy [None]
  - Abortion spontaneous [None]
  - Drug ineffective [None]

NARRATIVE: CASE EVENT DATE: 20230119
